FAERS Safety Report 8586508-6 (Version None)
Quarter: 2012Q3

REPORT INFORMATION
  Report Type: 
  Country: None (occurrence: None)
  Receive Date: 20120810
  Receipt Date: 20120808
  Transmission Date: 20120928
  Serious: Yes (Hospitalization, Other)
  Sender: FDA-Public Use
  Company Number: CA-ROCHE-1078897

PATIENT
  Sex: Female

DRUGS (21)
  1. ACTEMRA [Suspect]
     Indication: RHEUMATOID ARTHRITIS
     Route: 042
     Dates: start: 20101123
  2. EUCORIN ANTI-ITCH SPRAY (UNK INGREDIENTS) [Concomitant]
     Route: 065
  3. ACETAMINOPHEN/CAFFEINE/CODEINE PHOSPHATE [Concomitant]
     Dosage: BRAND NAME: ACET
  4. CYCLOBENZAPRINE [Concomitant]
     Route: 065
  5. IMDUR [Concomitant]
     Route: 065
  6. ACTEMRA [Suspect]
     Route: 042
     Dates: start: 20120516
  7. METHOTREXATE [Concomitant]
  8. PREDNISONE TAB [Concomitant]
     Route: 065
  9. CALCIUM [Concomitant]
     Route: 065
  10. NAPROXEN [Concomitant]
     Route: 065
  11. TIAZAC [Concomitant]
     Route: 065
  12. TRAZALON [Concomitant]
     Route: 065
  13. GUAIFENESIN/PHENYLEPHRINE [Concomitant]
     Dosage: BRAND NAME: D TABS
  14. LYRICA [Concomitant]
     Route: 065
  15. METHOTRIMEPRAZINE [Concomitant]
     Route: 065
  16. RANITIDINE [Concomitant]
     Route: 065
  17. CRESTOR [Concomitant]
     Route: 065
  18. ACTEMRA [Suspect]
     Route: 042
     Dates: start: 20111116
  19. PANTOPRAZOLE [Concomitant]
     Route: 065
  20. ASPIRIN [Concomitant]
     Route: 065
  21. LORAZEPAM [Concomitant]
     Route: 065

REACTIONS (4)
  - INTRA-ABDOMINAL HAEMATOMA [None]
  - PLATELET COUNT DECREASED [None]
  - ABDOMINAL PAIN UPPER [None]
  - WOUND [None]
